FAERS Safety Report 5132287-4 (Version None)
Quarter: 2006Q4

REPORT INFORMATION
  Report Type: 
  Country: None (occurrence: None)
  Receive Date: 20061019
  Receipt Date: 20061019
  Transmission Date: 20070319
  Serious: Yes (Hospitalization)
  Sender: FDA-Public Use
  Company Number: None

PATIENT
  Age: 72 Year
  Sex: Male
  Weight: 113.1 kg

DRUGS (27)
  1. MOMETASONE FUROATE [Suspect]
  2. FOLIC ACID [Concomitant]
  3. METOPROLOL TARTRATE [Concomitant]
  4. RANITIDINE HCL [Concomitant]
  5. FUROSEMIDE [Concomitant]
  6. SIMVASTATIN [Concomitant]
  7. GLIPIZIDE [Concomitant]
  8. DOCUSATE NA [Concomitant]
  9. LORATADINE [Concomitant]
  10. FORMOTEROL FUMARATE [Concomitant]
  11. LANOXIN [Concomitant]
  12. ALCOHOL PREP PAD [Concomitant]
  13. SURE STEP GLUCOSE TEST STRIP [Concomitant]
  14. HYDROXYZINE HCL [Concomitant]
  15. IPRATROPIUM BROMIDE [Concomitant]
  16. LUBRIDERM LOTION [Concomitant]
  17. ALBUTEROL / IPRATROP [Concomitant]
  18. MONTELUKAST [Concomitant]
  19. GUAIFENESIN [Concomitant]
  20. GLOVE VINYL MEDIUM NONSTERILE [Concomitant]
  21. INSULIN SYRINGE [Concomitant]
  22. DEXAMETHASONE [Concomitant]
  23. INSULIN, ASPART, HUMAN [Concomitant]
  24. INSULIN NPH HUMAN / NOVOLIN N [Concomitant]
  25. CURASOL WOUND DRESSING [Concomitant]
  26. TERAZOSIN HCL [Concomitant]
  27. ECONAZOLE NITRATE [Concomitant]

REACTIONS (2)
  - ANXIETY [None]
  - DYSPNOEA [None]
